FAERS Safety Report 15241699 (Version 1)
Quarter: 2018Q3

REPORT INFORMATION
  Report Type: Spontaneous
  Country: US (occurrence: US)
  Receive Date: 20180712
  Receipt Date: 20180712
  Transmission Date: 20181010
  Serious: Yes (Hospitalization)
  Sender: FDA-Public Use
  Company Number: None

PATIENT
  Sex: Female

DRUGS (14)
  1. EUCRISA [Concomitant]
     Active Substance: CRISABOROLE
  2. ALLZITAL [Concomitant]
     Active Substance: ACETAMINOPHEN\BUTALBITAL
  3. AMBIEN [Concomitant]
     Active Substance: ZOLPIDEM TARTRATE
  4. FUROSEMIDE. [Concomitant]
     Active Substance: FUROSEMIDE
  5. HYDROXYZ HCL [Concomitant]
     Active Substance: HYDROXYZINE HYDROCHLORIDE
  6. SPIRONOLACTONE. [Concomitant]
     Active Substance: SPIRONOLACTONE
  7. STELARA [Concomitant]
     Active Substance: USTEKINUMAB
  8. PROMETHAZINE [Concomitant]
     Active Substance: PROMETHAZINE\PROMETHAZINE HYDROCHLORIDE
  9. FUROSEMIDE. [Concomitant]
     Active Substance: FUROSEMIDE
  10. ULORIC [Concomitant]
     Active Substance: FEBUXOSTAT
  11. LEVOTHYROXIN [Concomitant]
     Active Substance: LEVOTHYROXINE
  12. COSENTYX [Suspect]
     Active Substance: SECUKINUMAB
     Indication: PSORIATIC ARTHROPATHY
     Route: 058
     Dates: start: 20180525
  13. QUETIAPINE. [Concomitant]
     Active Substance: QUETIAPINE
  14. LYRICA [Concomitant]
     Active Substance: PREGABALIN

REACTIONS (4)
  - Psoriasis [None]
  - Condition aggravated [None]
  - Treatment noncompliance [None]
  - Pruritus [None]
